FAERS Safety Report 7213617-6 (Version None)
Quarter: 2011Q1

REPORT INFORMATION
  Report Type: 
  Country: None (occurrence: None)
  Receive Date: 20110106
  Receipt Date: 20101229
  Transmission Date: 20110831
  Serious: Yes (Other)
  Sender: FDA-Public Use
  Company Number: CHPA2010US19594

PATIENT
  Age: 81 Year
  Sex: Male
  Weight: 79.365 kg

DRUGS (3)
  1. VOLTAREN [Suspect]
     Indication: HERPES ZOSTER
     Dosage: UNK, BID OR QID
     Route: 061
     Dates: start: 20100601, end: 20101229
  2. VOLTAREN [Suspect]
     Indication: ULCER
  3. VOLTAREN [Suspect]
     Indication: PAIN IN EXTREMITY

REACTIONS (5)
  - DIZZINESS [None]
  - FEELING ABNORMAL [None]
  - OFF LABEL USE [None]
  - HYPOTENSION [None]
  - DRUG ADMINISTERED AT INAPPROPRIATE SITE [None]
